FAERS Safety Report 7551930-3 (Version None)
Quarter: 2011Q2

REPORT INFORMATION
  Report Type: 
  Country: None (occurrence: None)
  Receive Date: 20110616
  Receipt Date: 20110606
  Transmission Date: 20111010
  Serious: No
  Sender: FDA-Public Use
  Company Number: US-BAYER-2011-048924

PATIENT
  Age: 28 Year
  Sex: Female

DRUGS (1)
  1. BEYAZ [Suspect]
     Dosage: UNK
     Dates: start: 20110501

REACTIONS (6)
  - ABDOMINAL DISTENSION [None]
  - METRORRHAGIA [None]
  - MENORRHAGIA [None]
  - BREAST TENDERNESS [None]
  - FLATULENCE [None]
  - BREAST SWELLING [None]
